FAERS Safety Report 20658246 (Version 1)
Quarter: 2022Q1

REPORT INFORMATION
  Report Type: Spontaneous
  Country: FR (occurrence: FR)
  Receive Date: 20220331
  Receipt Date: 20220331
  Transmission Date: 20220424
  Serious: Yes (Hospitalization)
  Sender: FDA-Public Use
  Company Number: None

PATIENT
  Age: 51 Year
  Sex: Male

DRUGS (11)
  1. PROPOFOL [Suspect]
     Active Substance: PROPOFOL
     Indication: Product used for unknown indication
     Dosage: UNK (PRIOR TO 25/01/22)
  2. SUFENTANIL [Suspect]
     Active Substance: SUFENTANIL
     Indication: Product used for unknown indication
     Dosage: UNK (PRIOR TO 25/01/22)
  3. LANSOPRAZOLE [Suspect]
     Active Substance: LANSOPRAZOLE
     Indication: Product used for unknown indication
     Dosage: UNK (PRIOR TO 25/01/22)
  4. METHYLPREDNISOLONE [Suspect]
     Active Substance: METHYLPREDNISOLONE
     Indication: Product used for unknown indication
     Dosage: UNK (ON 26/01/22 THEN FROM 01/02/22)
  5. INSULIN NOS [Suspect]
     Active Substance: INSULIN NOS
     Indication: Product used for unknown indication
     Dosage: UNK (PRIOR TO 25/01/22)
  6. ENOXAPARIN SODIUM [Suspect]
     Active Substance: ENOXAPARIN SODIUM
     Indication: Product used for unknown indication
     Dosage: UNK (PRIOR TO 25/01/22)
  7. LEVOTHYROXINE [Suspect]
     Active Substance: LEVOTHYROXINE
     Indication: Product used for unknown indication
     Dosage: UNK (PRIOR TO 25/01/22)
  8. MOVICOL [Suspect]
     Active Substance: POLYETHYLENE GLYCOL 3350\POTASSIUM CHLORIDE\SODIUM BICARBONATE\SODIUM CHLORIDE
     Dosage: UNK (ON 26/01/22 THEN FROM 01/02/22 )
  9. OXAZEPAM [Suspect]
     Active Substance: OXAZEPAM
     Indication: Product used for unknown indication
     Dosage: UNK (ON 25 AND 26/01/2022, THEN FROM 29/01/2022)
  10. IMIPENEM [Suspect]
     Active Substance: IMIPENEM
     Indication: Product used for unknown indication
     Dosage: UNK
     Dates: start: 20220128, end: 20220207
  11. ALCOHOL AND DEXTROSE [Suspect]
     Active Substance: ALCOHOL\DEXTROSE MONOHYDRATE
     Indication: Product used for unknown indication
     Dosage: UNK (PRIOR TO 25/01/22)

REACTIONS (1)
  - Polyuria [Not Recovered/Not Resolved]

NARRATIVE: CASE EVENT DATE: 20220128
